FAERS Safety Report 8117763-4 (Version None)
Quarter: 2012Q1

REPORT INFORMATION
  Report Type: 
  Country: None (occurrence: None)
  Receive Date: 20120202
  Receipt Date: 20120117
  Transmission Date: 20120608
  Serious: No
  Sender: FDA-Public Use
  Company Number: 2011HGS-002696

PATIENT
  Age: 50 Year
  Sex: Male
  Weight: 101.6057 kg

DRUGS (2)
  1. BENLYSTA [Suspect]
     Indication: SYSTEMIC LUPUS ERYTHEMATOSUS
     Dosage: 1000 MG, 1 IN 4 WK, INTRAVENOUS DRIP
     Route: 041
     Dates: start: 20111025
  2. BENLYSTA [Suspect]

REACTIONS (4)
  - SYNCOPE [None]
  - VASCULAR ACCESS COMPLICATION [None]
  - INFUSION RELATED REACTION [None]
  - PAIN [None]
